FAERS Safety Report 6421706-9 (Version None)
Quarter: 2009Q4

REPORT INFORMATION
  Report Type: 
  Country: None (occurrence: None)
  Receive Date: 20091030
  Receipt Date: 20091021
  Transmission Date: 20100525
  Serious: Yes (Hospitalization, Other)
  Sender: FDA-Public Use
  Company Number: GB-JNJFOC-20060800957

PATIENT
  Sex: Male
  Weight: 110 kg

DRUGS (12)
  1. REMICADE [Suspect]
     Indication: DRUG USE FOR UNKNOWN INDICATION
     Route: 042
  2. ACETAMINOPHEN AND CODEINE PHOSPHATE [Suspect]
     Indication: DRUG USE FOR UNKNOWN INDICATION
     Route: 048
  3. ACETAMINOPHEN [Suspect]
     Indication: DRUG USE FOR UNKNOWN INDICATION
     Route: 048
  4. ASACOL [Concomitant]
     Route: 065
  5. AZATHIOPRINE [Concomitant]
     Route: 065
  6. CIPROFLOXACIN [Concomitant]
     Route: 065
  7. LANSOPRAZOLE [Concomitant]
     Route: 065
  8. FLUOXETINE [Concomitant]
     Route: 065
  9. BUSCOPAN [Concomitant]
     Route: 065
  10. MILPAR [Concomitant]
     Route: 065
  11. PARAFFIN [Concomitant]
  12. HYOSCINE HBR HYT [Concomitant]

REACTIONS (3)
  - EUPHORIC MOOD [None]
  - GAMMA-GLUTAMYLTRANSFERASE INCREASED [None]
  - MULTIPLE DRUG OVERDOSE [None]
